FAERS Safety Report 10025687 (Version 1)
Quarter: 2014Q1

REPORT INFORMATION
  Report Type: Spontaneous
  Country: CH (occurrence: CH)
  Receive Date: 20140320
  Receipt Date: 20140320
  Transmission Date: 20141002
  Serious: Yes (Hospitalization)
  Sender: FDA-Public Use
  Company Number: CH-B.I. PHARMACEUTICALS,INC./RIDGEFIELD-2014-BI-11913BY

PATIENT
  Age: 55 Year
  Sex: Female

DRUGS (4)
  1. MICARDIS PLUS [Suspect]
     Indication: HYPERTENSION
     Route: 065
  2. ATORVASTATIN (ATORVASTATIN) [Suspect]
     Indication: LOW DENSITY LIPOPROTEIN INCREASED
     Dosage: 160 MG
     Route: 048
  3. AMLODIPIN [Concomitant]
     Route: 065
  4. INSULIN [Concomitant]
     Route: 065

REACTIONS (5)
  - Rhabdomyolysis [Unknown]
  - Aspartate aminotransferase increased [Unknown]
  - Alanine aminotransferase increased [Unknown]
  - Hyponatraemia [Unknown]
  - Overdose [Unknown]
